FAERS Safety Report 24268006 (Version 1)
Quarter: 2024Q3

REPORT INFORMATION
  Report Type: Spontaneous
  Country: US (occurrence: US)
  Receive Date: 20240830
  Receipt Date: 20240830
  Transmission Date: 20241016
  Serious: No
  Sender: LEO PHARM
  Company Number: US-LEO Pharma-373090

PATIENT
  Age: 37 Year
  Sex: Female

DRUGS (2)
  1. ADBRY [Suspect]
     Active Substance: TRALOKINUMAB-LDRM
     Indication: Dermatitis atopic
     Dosage: INJECT 300 MG (2 PREFILLED SYRINGES) SUBCUTANEOUSLY EVERY 2 WEEKS
     Route: 058
  2. HYDROXYZINE [Concomitant]
     Active Substance: HYDROXYZINE HYDROCHLORIDE
     Indication: Product used for unknown indication

REACTIONS (1)
  - Hypersensitivity [Recovered/Resolved]
